FAERS Safety Report 17172710 (Version 1)
Quarter: 2019Q4

REPORT INFORMATION
  Report Type: Spontaneous
  Country: US (occurrence: US)
  Receive Date: 20191219
  Receipt Date: 20191219
  Transmission Date: 20200122
  Serious: No
  Sender: FDA-Public Use
  Company Number: US-SA-2019SA348398

PATIENT
  Sex: Female

DRUGS (2)
  1. ASPERCREME WARMING NO MESS [Suspect]
     Active Substance: CAPSAICIN
     Indication: MUSCULOSKELETAL PAIN
     Dosage: UNK UNK, UNK
     Route: 065
  2. ASPERCREME WARMING NO MESS [Suspect]
     Active Substance: CAPSAICIN
     Indication: BACK PAIN

REACTIONS (1)
  - Application site burn [Unknown]

NARRATIVE: CASE EVENT DATE: 20121211
